FAERS Safety Report 4379534-4 (Version None)
Quarter: 2004Q2

REPORT INFORMATION
  Report Type: 
  Country: None (occurrence: None)
  Receive Date: 20040614
  Receipt Date: 20040602
  Transmission Date: 20050107
  Serious: Yes (Other)
  Sender: FDA-Public Use
  Company Number: 2004037044

PATIENT
  Age: 57 Year
  Sex: Female

DRUGS (9)
  1. ACCUPRIL [Suspect]
     Indication: HYPERTENSION
     Dosage: 20 MG (20 MG, 1 IN 1 D)
  2. MESALAZINE (MESALAZINE) [Concomitant]
  3. PROPACET (DEXTROPROPOXYPHENE NAPSILATE, PARACETAMOL) [Concomitant]
  4. TRIAMCINOLONE ACETONIDE [Concomitant]
  5. ALPRAZOLAM [Concomitant]
  6. LEVOTHYROXINE SODIUM (LEVOTHYROXNE SODIUM) [Concomitant]
  7. LANSOPRAZOLE [Concomitant]
  8. GLUCERYL TRINITRATE (GLYCERYL TRINITRATE) [Concomitant]
  9. ESCITALOPRAM (ESCITALOPRAM) [Concomitant]

REACTIONS (5)
  - FEELING ABNORMAL [None]
  - ILEAL PERFORATION [None]
  - ILEOSTOMY [None]
  - PAIN IN EXTREMITY [None]
  - STRESS SYMPTOMS [None]
